FAERS Safety Report 17089114 (Version 1)
Quarter: 2019Q4

REPORT INFORMATION
  Report Type: Spontaneous
  Country: CR (occurrence: CR)
  Receive Date: 20191128
  Receipt Date: 20191128
  Transmission Date: 20200122
  Serious: Yes (Other)
  Sender: FDA-Public Use
  Company Number: CR-ALLERGAN-1948181US

PATIENT
  Sex: Female

DRUGS (1)
  1. ZYPRED [Suspect]
     Active Substance: GATIFLOXACIN\PREDNISOLONE ACETATE
     Indication: INFECTION PROPHYLAXIS
     Dosage: UNK
     Route: 047
     Dates: start: 201909, end: 201909

REACTIONS (1)
  - Impaired healing [Unknown]
